FAERS Safety Report 22106267 (Version 7)
Quarter: 2024Q2

REPORT INFORMATION
  Report Type: Report from Study
  Country: BE (occurrence: BE)
  Receive Date: 20230317
  Receipt Date: 20240623
  Transmission Date: 20240716
  Serious: Yes (Hospitalization)
  Sender: FDA-Public Use
  Company Number: BE-JNJFOC-20230319078

PATIENT
  Age: 58 Year
  Sex: Male
  Weight: 113 kg

DRUGS (4)
  1. ESKETAMINE [Suspect]
     Active Substance: ESKETAMINE
     Indication: Depression
     Dosage: 2 DEVICES; 1 DOSE
     Dates: start: 20220725, end: 20220725
  2. ESKETAMINE [Suspect]
     Active Substance: ESKETAMINE
     Dosage: 3 DEVICES?RECEIVED DOSES ON, 01-AUG-2022, 05-AUG-2022,08-AUG-2022, 12-AUG-2022, 16-AUG-2022, 19-AUG-
     Dates: start: 20220729, end: 20230828
  3. ESKETAMINE [Suspect]
     Active Substance: ESKETAMINE
     Dosage: 2 DEVICES; 1 DOSE
     Dates: start: 20240110, end: 20240110
  4. ESKETAMINE [Suspect]
     Active Substance: ESKETAMINE
     Dosage: 3 DEVICES; 1 DOSE
     Dates: start: 20240112, end: 20240112

REACTIONS (5)
  - Colonoscopy [Recovered/Resolved]
  - Hypertension [Recovered/Resolved]
  - Pain in extremity [Not Recovered/Not Resolved]
  - Arthralgia [Not Recovered/Not Resolved]
  - Abdominal pain upper [Recovered/Resolved]

NARRATIVE: CASE EVENT DATE: 20230101
